FAERS Safety Report 9402092 (Version 1)
Quarter: 2013Q3

REPORT INFORMATION
  Report Type: Report from Study
  Country: FR (occurrence: FR)
  Receive Date: 20130716
  Receipt Date: 20130716
  Transmission Date: 20140515
  Serious: Yes (Hospitalization)
  Sender: FDA-Public Use
  Company Number: PHHO2013FR008721

PATIENT
  Age: 69 Year
  Sex: Male
  Weight: 62 kg

DRUGS (2)
  1. AFINITOR [Suspect]
     Indication: GASTROINTESTINAL CARCINOMA
     Dosage: 5 MG, UNK
     Route: 048
     Dates: start: 20130603, end: 20130627
  2. SORAFENIB [Suspect]
     Indication: GASTROINTESTINAL CARCINOMA
     Dosage: 200 MG, UNK
     Route: 048
     Dates: start: 20130617, end: 20130627

REACTIONS (1)
  - Lung disorder [Recovered/Resolved with Sequelae]
